FAERS Safety Report 5141213-3 (Version None)
Quarter: 2006Q4

REPORT INFORMATION
  Report Type: 
  Country: None (occurrence: None)
  Receive Date: 20061101
  Receipt Date: 20061010
  Transmission Date: 20070319
  Serious: Yes (Hospitalization)
  Sender: FDA-Public Use
  Company Number: FR-BAYER-200610949BFR

PATIENT
  Age: 60 Year
  Sex: Female

DRUGS (9)
  1. MOXIFLOXACIN HYDROCHLORIDE [Interacting]
     Indication: UNEVALUABLE EVENT
     Route: 048
     Dates: start: 20060615
  2. BACTRIM [Interacting]
     Indication: UNEVALUABLE EVENT
     Route: 048
     Dates: start: 20060428
  3. PREVISCAN [Interacting]
     Indication: UNEVALUABLE EVENT
     Dosage: TOTAL DAILY DOSE: 5 MG  UNIT DOSE: 5 MG
     Route: 048
     Dates: start: 20060626, end: 20060803
  4. FENOFIBRATE [Suspect]
     Indication: UNEVALUABLE EVENT
     Route: 048
     Dates: start: 20050615
  5. REMICADE [Concomitant]
     Indication: RHEUMATOID ARTHRITIS
  6. CORTANCYL [Concomitant]
     Indication: RHEUMATOID ARTHRITIS
  7. NOVATREX [Concomitant]
     Indication: RHEUMATOID ARTHRITIS
  8. HEPARIN [Concomitant]
     Indication: IMPLANT SITE THROMBOSIS
  9. SINTROM [Concomitant]
     Indication: IMPLANT SITE THROMBOSIS

REACTIONS (2)
  - HAEMATOMA [None]
  - PROTHROMBIN LEVEL DECREASED [None]
